FAERS Safety Report 7888906-2 (Version None)
Quarter: 2011Q4

REPORT INFORMATION
  Report Type: 
  Country: None (occurrence: None)
  Receive Date: 20111103
  Receipt Date: 20111031
  Transmission Date: 20120403
  Serious: Yes (Hospitalization, Other)
  Sender: FDA-Public Use
  Company Number: US-AMGEN-USASP2011056383

PATIENT
  Age: 62 Year
  Sex: Female

DRUGS (1)
  1. ENBREL [Suspect]
     Indication: RHEUMATOID ARTHRITIS
     Dosage: 50 MG, QWK
     Dates: start: 20060615

REACTIONS (4)
  - POST PROCEDURAL STROKE [None]
  - FLUID OVERLOAD [None]
  - CARDIAC OPERATION [None]
  - THERAPEUTIC RESPONSE DECREASED [None]
